FAERS Safety Report 23757422 (Version 1)
Quarter: 2024Q2

REPORT INFORMATION
  Report Type: Spontaneous
  Country: US (occurrence: None)
  Receive Date: 20240417
  Receipt Date: 20240417
  Transmission Date: 20240716
  Serious: Yes (Death)
  Sender: FDA-Public Use
  Company Number: None

PATIENT
  Age: 62 Year
  Sex: Female
  Weight: 81.65 kg

DRUGS (1)
  1. OZEMPIC [Suspect]
     Active Substance: SEMAGLUTIDE

REACTIONS (6)
  - Gastrointestinal necrosis [None]
  - Septic shock [None]
  - Renal injury [None]
  - Liver injury [None]
  - Myocardial injury [None]
  - Cardio-respiratory arrest [None]
